FAERS Safety Report 4899188-8 (Version None)
Quarter: 2006Q1

REPORT INFORMATION
  Report Type: 
  Country: None (occurrence: None)
  Receive Date: 20060130
  Receipt Date: 20060116
  Transmission Date: 20060701
  Serious: Yes (Hospitalization)
  Sender: FDA-Public Use
  Company Number: 2006009301

PATIENT
  Age: 60 Year
  Sex: Male
  Weight: 73 kg

DRUGS (12)
  1. FRAGMIN [Suspect]
     Indication: ARTERIAL THROMBOSIS LIMB
     Dosage: SUBCUTANEOUS
     Route: 058
     Dates: start: 20050818, end: 20050819
  2. FRAGMIN [Suspect]
     Indication: EMBOLISM
     Dosage: SUBCUTANEOUS
     Route: 058
     Dates: start: 20050818, end: 20050819
  3. HEPARIN SODIUM [Suspect]
     Indication: ARTERIAL THROMBOSIS LIMB
     Dosage: INTRAVENOUS
     Route: 042
     Dates: start: 20050815, end: 20050823
  4. HEPARIN SODIUM [Suspect]
     Indication: EMBOLISM
     Dosage: INTRAVENOUS
     Route: 042
     Dates: start: 20050815, end: 20050823
  5. REFLUDAN [Suspect]
     Indication: ARTERIAL THROMBOSIS LIMB
     Dosage: INTRAVENOUS
     Route: 042
     Dates: start: 20050825, end: 20050828
  6. REFLUDAN [Suspect]
     Indication: EMBOLISM
     Dosage: INTRAVENOUS
     Route: 042
     Dates: start: 20050825, end: 20050828
  7. MARCUMAR [Suspect]
     Indication: ARTERIAL THROMBOSIS
     Dosage: ORAL
     Route: 048
     Dates: start: 20050825, end: 20050828
  8. MARCUMAR [Suspect]
     Indication: EMBOLISM
     Dosage: ORAL
     Route: 048
     Dates: start: 20050825, end: 20050828
  9. ZANIDIP (LERCANIDIPINE HYDROCHLORIDE) [Concomitant]
  10. NEBIVOLOL HCL [Concomitant]
  11. KALIUM HAUSMANN (POTASSIUM CHLORIDE) [Concomitant]
  12. MAGNESIUM (MAGNESIUM) [Concomitant]

REACTIONS (20)
  - ANAEMIA [None]
  - APHASIA [None]
  - ATRIAL SEPTAL DEFECT [None]
  - BLOOD PRESSURE SYSTOLIC DECREASED [None]
  - CARDIAC DISORDER [None]
  - CEREBRAL INFARCTION [None]
  - COAGULATION TIME PROLONGED [None]
  - COAGULOPATHY [None]
  - COLD SWEAT [None]
  - DEEP VEIN THROMBOSIS [None]
  - DRUG INEFFECTIVE [None]
  - FALL [None]
  - GASTROINTESTINAL HAEMORRHAGE [None]
  - HEPARIN-INDUCED THROMBOCYTOPENIA [None]
  - HYPOTONIA [None]
  - LOSS OF CONSCIOUSNESS [None]
  - PALLOR [None]
  - PROTHROMBIN TIME SHORTENED [None]
  - TACHYCARDIA [None]
  - VERBIGERATION [None]
